FAERS Safety Report 14685600 (Version 1)
Quarter: 2018Q1

REPORT INFORMATION
  Report Type: Spontaneous
  Country: CZ (occurrence: CZ)
  Receive Date: 20180327
  Receipt Date: 20180327
  Transmission Date: 20180509
  Serious: Yes (Other)
  Sender: FDA-Public Use
  Company Number: CZ-BAUSCH-BL-2018-006995

PATIENT
  Age: 78 Year
  Sex: Female

DRUGS (3)
  1. IMNOVID [Suspect]
     Active Substance: POMALIDOMIDE
     Dosage: DOSE REDUCED; 28 DAYS
     Route: 048
     Dates: start: 20160803, end: 20170208
  2. DEXAMETHASONE. [Suspect]
     Active Substance: DEXAMETHASONE
     Indication: PLASMA CELL MYELOMA
     Route: 065
     Dates: start: 20160629, end: 20170208
  3. IMNOVID [Suspect]
     Active Substance: POMALIDOMIDE
     Indication: PLASMA CELL MYELOMA
     Dosage: 28 DAYS, 4 MG
     Route: 048
     Dates: start: 20160629

REACTIONS (4)
  - Road traffic accident [Unknown]
  - C-reactive protein increased [Unknown]
  - Hip fracture [Unknown]
  - Tumour lysis syndrome [Unknown]

NARRATIVE: CASE EVENT DATE: 20160803
